FAERS Safety Report 8082571-X (Version None)
Quarter: 2012Q1

REPORT INFORMATION
  Report Type: 
  Country: None (occurrence: None)
  Receive Date: 20120127
  Receipt Date: 20110222
  Transmission Date: 20120608
  Serious: No
  Sender: FDA-Public Use
  Company Number: US-ABBOTT-11P-163-0706984-00

PATIENT
  Age: 84 Year
  Sex: Female

DRUGS (13)
  1. LEXAPRO [Concomitant]
     Indication: PRODUCT USED FOR UNKNOWN INDICATION
     Dosage: 20 MG DAILY
  2. HUMIRA [Suspect]
     Indication: RHEUMATOID ARTHRITIS
     Dates: start: 20110104
  3. CELEBREX [Concomitant]
     Indication: PRODUCT USED FOR UNKNOWN INDICATION
     Dosage: 200 MG DAILY
  4. VITAMIN D [Concomitant]
     Indication: PRODUCT USED FOR UNKNOWN INDICATION
  5. PREDNISONE TAB [Concomitant]
     Indication: PRODUCT USED FOR UNKNOWN INDICATION
     Dosage: 5 MG DAILY
  6. BUFFERED C [Concomitant]
     Indication: PRODUCT USED FOR UNKNOWN INDICATION
  7. LECITHIN [Concomitant]
     Indication: PRODUCT USED FOR UNKNOWN INDICATION
     Dosage: DAILY
  8. AMIODARONE HCL [Concomitant]
     Indication: ARRHYTHMIA PROPHYLAXIS
     Dosage: 100 MG DAILY
  9. AMLODIPINE [Concomitant]
     Indication: PRODUCT USED FOR UNKNOWN INDICATION
     Dosage: 5 MG DAILY
  10. PANTOPRAZOLE [Concomitant]
     Indication: GASTROOESOPHAGEAL REFLUX DISEASE
     Dosage: 40 MG DAILY
  11. ACTIMEL [Concomitant]
     Indication: IMMUNE SYSTEM DISORDER
     Dosage: WEEKLY
  12. FOLIC ACID [Concomitant]
     Indication: PRODUCT USED FOR UNKNOWN INDICATION
     Dosage: 1 MG DAILY
  13. METHYLSULFONYLMETHANE [Concomitant]
     Indication: ARTHRITIS
     Dosage: EVERY DAY

REACTIONS (3)
  - INJECTION SITE ERYTHEMA [None]
  - INCONTINENCE [None]
  - CYSTITIS [None]
